FAERS Safety Report 10954875 (Version 20)
Quarter: 2019Q3

REPORT INFORMATION
  Report Type: Report from Study
  Country: CA (occurrence: CA)
  Receive Date: 20150325
  Receipt Date: 20190809
  Transmission Date: 20191004
  Serious: Yes (Hospitalization, Other)
  Sender: FDA-Public Use
  Company Number: PHHY2014CA109807

PATIENT
  Age: 65 Year
  Sex: Male

DRUGS (3)
  1. CANDESARTAN. [Concomitant]
     Active Substance: CANDESARTAN
     Indication: HYPERTENSION
     Dosage: 6 MG, QD
     Route: 065
  2. SANDOSTATIN [Suspect]
     Active Substance: OCTREOTIDE ACETATE
     Indication: CARCINOID TUMOUR
     Dosage: 150 UG, ONCE/SINGLE (TEST)
     Route: 058
     Dates: start: 20140820, end: 20140820
  3. SANDOSTATIN LAR DEPOT [Suspect]
     Active Substance: OCTREOTIDE ACETATE
     Indication: CARCINOID TUMOUR
     Dosage: 30 MG, QMO (EVERY 4 WEEKS)
     Route: 030
     Dates: start: 20140827

REACTIONS (13)
  - Needle issue [Unknown]
  - Thrombosis [Unknown]
  - Body temperature decreased [Unknown]
  - Bladder cancer [Unknown]
  - Fatigue [Unknown]
  - Second primary malignancy [Unknown]
  - Cataract [Unknown]
  - Nasal congestion [Recovering/Resolving]
  - Blood pressure increased [Unknown]
  - Nasopharyngitis [Recovering/Resolving]
  - Joint swelling [Unknown]
  - Carcinoid tumour [Unknown]
  - Malignant neoplasm progression [Unknown]

NARRATIVE: CASE EVENT DATE: 20140827
